FAERS Safety Report 9259128 (Version 1)
Quarter: 2013Q2

REPORT INFORMATION
  Report Type: Spontaneous
  Country: US (occurrence: US)
  Receive Date: 20130426
  Receipt Date: 20130426
  Transmission Date: 20140414
  Serious: Yes (Other)
  Sender: FDA-Public Use
  Company Number: US-PFIZER INC-2013130055

PATIENT
  Age: 63 Year
  Sex: Male
  Weight: 87.98 kg

DRUGS (2)
  1. LYRICA [Suspect]
     Indication: NEUROPATHY PERIPHERAL
     Dosage: 75 MG, 3X/DAY
     Route: 048
  2. ALLOPURINOL [Concomitant]
     Indication: GOUT
     Dosage: 100 MG, 2X/DAY

REACTIONS (2)
  - Pneumonia [Unknown]
  - Drug ineffective [Unknown]
